FAERS Safety Report 12761365 (Version 1)
Quarter: 2016Q3

REPORT INFORMATION
  Report Type: Spontaneous
  Country: US (occurrence: US)
  Receive Date: 20160920
  Receipt Date: 20160920
  Transmission Date: 20161109
  Serious: Yes (Other)
  Sender: FDA-Public Use
  Company Number: US-RECKITT BENCKISER HEALTHCARE INT LIMITED-RB-90592-2016

PATIENT
  Age: 62 Year
  Sex: Female

DRUGS (1)
  1. MUCINEX D [Suspect]
     Active Substance: GUAIFENESIN\PSEUDOEPHEDRINE HYDROCHLORIDE
     Indication: PRODUCT USED FOR UNKNOWN INDICATION
     Dosage: 1200 MG, BID, TOOK 2 DURING DAY (AT 10:30AM), 2 AT NIGHT (AT 10:30PM)
     Route: 065
     Dates: start: 20160912

REACTIONS (6)
  - Discomfort [Unknown]
  - Oral discomfort [Unknown]
  - Dyspnoea [Unknown]
  - Dry mouth [Recovered/Resolved]
  - Blood pressure increased [Unknown]
  - Headache [Not Recovered/Not Resolved]

NARRATIVE: CASE EVENT DATE: 201609
